FAERS Safety Report 24729466 (Version 1)
Quarter: 2024Q4

REPORT INFORMATION
  Report Type: Spontaneous
  Country: US (occurrence: US)
  Receive Date: 20241213
  Receipt Date: 20241213
  Transmission Date: 20250114
  Serious: No
  Sender: ACCORD
  Company Number: US-Accord-425347

PATIENT
  Sex: Male

DRUGS (1)
  1. LEVOTHYROXINE SODIUM [Suspect]
     Active Substance: LEVOTHYROXINE SODIUM
     Indication: Thyroid disorder
     Dosage: STRENGTH: 100 MCG, BY MOUTH, DAILY
     Dates: start: 20240510

REACTIONS (4)
  - Product solubility abnormal [Unknown]
  - Product substitution issue [Unknown]
  - Product physical issue [Unknown]
  - Oesophageal discomfort [Unknown]

NARRATIVE: CASE EVENT DATE: 20240510
